FAERS Safety Report 15626741 (Version 3)
Quarter: 2018Q4

REPORT INFORMATION
  Report Type: Spontaneous
  Country: FR (occurrence: FR)
  Receive Date: 20181116
  Receipt Date: 20181204
  Transmission Date: 20190205
  Serious: Yes (Other)
  Sender: FDA-Public Use
  Company Number: FR-PFIZER INC-2018467018

PATIENT
  Age: 29 Year
  Sex: Male
  Weight: 50 kg

DRUGS (4)
  1. PRONTALGINE [CAFFEINE;CODEINE PHOSPHATE HEMIHYDRATE;PARACETAMOL] [Suspect]
     Active Substance: ACETAMINOPHEN\CAFFEINE\CODEINE
     Indication: TOOTHACHE
     Dosage: 2 DF, UNK
     Route: 048
     Dates: start: 20180817, end: 20180817
  2. ADVIL [Suspect]
     Active Substance: IBUPROFEN
     Indication: TOOTHACHE
     Dosage: 400 MG, UNK
     Route: 048
     Dates: start: 20180816, end: 20180816
  3. PARACETAMOL BIOGARAN [Suspect]
     Active Substance: ACETAMINOPHEN
     Indication: TOOTHACHE
     Dosage: 5 G, UNK (5 GRAMS IN THE SPACE OF 10 H)
     Route: 048
     Dates: start: 20180816, end: 20180817
  4. SPIFEN [Suspect]
     Active Substance: IBUPROFEN
     Indication: TOOTHACHE
     Dosage: 800 MG, UNK
     Route: 048
     Dates: start: 20180816, end: 20180816

REACTIONS (2)
  - Abdominal pain upper [Recovered/Resolved]
  - Loss of consciousness [Recovered/Resolved]

NARRATIVE: CASE EVENT DATE: 20180816
